FAERS Safety Report 6516722-2 (Version None)
Quarter: 2009Q4

REPORT INFORMATION
  Report Type: 
  Country: None (occurrence: None)
  Receive Date: 20091223
  Receipt Date: 20091211
  Transmission Date: 20100525
  Serious: Yes (Other)
  Sender: FDA-Public Use
  Company Number: JP-PFIZER INC-2009281986

PATIENT
  Age: 59 Year
  Sex: Male

DRUGS (6)
  1. SELARA [Suspect]
     Indication: HYPERTENSION
     Dosage: 25 MG DAILY
     Route: 048
     Dates: end: 20091009
  2. ANCARON [Suspect]
     Dosage: 400 MG,DAILY
     Route: 048
  3. NU LOTAN [Suspect]
     Indication: HYPERTENSION
     Dosage: 50 MG DAILY
     Route: 048
  4. MELBIN [Suspect]
     Indication: DIABETES MELLITUS
     Dosage: 750 MG DAILY
     Route: 048
  5. ARTIST [Suspect]
     Indication: HYPERTENSION
     Dosage: 5 MG DAILY
     Route: 048
  6. WARFARIN POTASSIUM [Suspect]
     Dosage: 4 MG DAILY
     Route: 048

REACTIONS (2)
  - ALANINE AMINOTRANSFERASE INCREASED [None]
  - ASPARTATE AMINOTRANSFERASE INCREASED [None]
